FAERS Safety Report 24961151 (Version 1)
Quarter: 2025Q1

REPORT INFORMATION
  Report Type: Spontaneous
  Country: US (occurrence: None)
  Receive Date: 20250211
  Receipt Date: 20250211
  Transmission Date: 20250409
  Serious: Yes (Other)
  Sender: FDA-CTU
  Company Number: None

PATIENT
  Age: 40 Year
  Sex: Female
  Weight: 112.05 kg

DRUGS (3)
  1. PANZYGA [Suspect]
     Active Substance: HUMAN IMMUNOGLOBULIN G
     Indication: Immune-mediated myositis
     Dosage: OTHER FREQUENCY : 2 DAYS Q 4 WEEKS;?
     Route: 041
  2. Cetirizine 10mg PO premed [Concomitant]
     Dates: start: 20250206, end: 20250206
  3. Acetaminophen 650mg PO premed [Concomitant]
     Dates: start: 20250206, end: 20250206

REACTIONS (7)
  - Dyspnoea [None]
  - Chest discomfort [None]
  - Pruritus [None]
  - Cough [None]
  - Oropharyngeal pain [None]
  - Swelling face [None]
  - Peripheral swelling [None]

NARRATIVE: CASE EVENT DATE: 20250206
